FAERS Safety Report 5796317-9 (Version None)
Quarter: 2008Q3

REPORT INFORMATION
  Report Type: 
  Country: None (occurrence: None)
  Receive Date: 20080701
  Receipt Date: 20080625
  Transmission Date: 20090109
  Serious: Yes (Other)
  Sender: FDA-Public Use
  Company Number: IE-AVENTIS-200816114GDDC

PATIENT
  Sex: Male

DRUGS (2)
  1. LANTUS [Suspect]
     Route: 058
  2. RAPID ACTING INSULIN [Suspect]

REACTIONS (3)
  - HYPERGLYCAEMIA [None]
  - KETOACIDOSIS [None]
  - PHARMACEUTICAL PRODUCT COMPLAINT [None]
